FAERS Safety Report 18019030 (Version 2)
Quarter: 2021Q2

REPORT INFORMATION
  Report Type: Spontaneous
  Country: None (occurrence: US)
  Receive Date: 20200714
  Receipt Date: 20210624
  Transmission Date: 20210717
  Serious: Yes (Death, Other)
  Sender: FDA-Public Use
  Company Number: US-GLAXOSMITHKLINE-US2020129749

PATIENT
  Sex: Male

DRUGS (5)
  1. ZANTAC [Suspect]
     Active Substance: RANITIDINE HYDROCHLORIDE
     Indication: DYSPEPSIA
     Dosage: TO BE SUPPLEMENTED|BOTH
     Route: 065
     Dates: start: 201001, end: 201705
  2. RANITIDINE CAPSULE [Suspect]
     Active Substance: RANITIDINE
     Indication: DYSPEPSIA
     Dosage: TO BE SUPPLEMENTED|BOTH
     Route: 065
     Dates: start: 201001, end: 201705
  3. ZANTAC [Suspect]
     Active Substance: RANITIDINE HYDROCHLORIDE
     Indication: DYSPEPSIA
     Dosage: TO BE SUPPLEMENTED|BOTH
     Route: 065
     Dates: start: 201001, end: 201705
  4. ZANTAC [Suspect]
     Active Substance: RANITIDINE HYDROCHLORIDE
     Dates: start: 20100615, end: 20150615
  5. ZANTAC [Suspect]
     Active Substance: RANITIDINE HYDROCHLORIDE
     Indication: DYSPEPSIA
     Dosage: TO BE SUPPLEMENTED|BOTH
     Route: 065
     Dates: start: 201001, end: 201705

REACTIONS (1)
  - Oesophageal carcinoma [Fatal]
